FAERS Safety Report 9442980 (Version 2)
Quarter: 2013Q3

REPORT INFORMATION
  Report Type: Spontaneous
  Country: DE (occurrence: DE)
  Receive Date: 20130806
  Receipt Date: 20130826
  Transmission Date: 20140515
  Serious: Yes (Other)
  Sender: FDA-Public Use
  Company Number: DE-ABBOTT-12P-062-1018574-00

PATIENT
  Age: 15 Year
  Sex: Female
  Weight: 46.8 kg

DRUGS (6)
  1. HUMIRA [Suspect]
     Indication: JUVENILE IDIOPATHIC ARTHRITIS
     Dosage: THERAPY-PAUSE
     Route: 058
     Dates: start: 20100704, end: 20120309
  2. HUMIRA [Suspect]
     Route: 058
     Dates: start: 2012
  3. HUMIRA [Suspect]
     Route: 058
  4. ARAVA [Concomitant]
     Indication: PRODUCT USED FOR UNKNOWN INDICATION
  5. GROWTH HORMONE [Concomitant]
  6. LEFLUNOMIDE [Concomitant]

REACTIONS (4)
  - Body height below normal [Not Recovered/Not Resolved]
  - Cataract operation [Unknown]
  - Alopecia areata [Recovering/Resolving]
  - Arthritis [Not Recovered/Not Resolved]
